FAERS Safety Report 8365362-1 (Version None)
Quarter: 2012Q2

REPORT INFORMATION
  Report Type: 
  Country: None (occurrence: None)
  Receive Date: 20120516
  Receipt Date: 20120503
  Transmission Date: 20120825
  Serious: No
  Sender: FDA-Public Use
  Company Number: US-ASTRAZENECA-2012SE24006

PATIENT
  Age: 51 Year
  Sex: Male
  Weight: 120.7 kg

DRUGS (2)
  1. PRIMATENE MIST [Concomitant]
     Indication: INHALATION THERAPY
  2. SYMBICORT [Suspect]
     Indication: CHRONIC OBSTRUCTIVE PULMONARY DISEASE
     Dosage: 160/4.5 MCG 2 PUFFS TWICE A DAY
     Route: 055

REACTIONS (5)
  - SINUSITIS [None]
  - INTENTIONAL DRUG MISUSE [None]
  - CHRONIC OBSTRUCTIVE PULMONARY DISEASE [None]
  - PHARYNGEAL DISORDER [None]
  - MALAISE [None]
